FAERS Safety Report 11271171 (Version 8)
Quarter: 2016Q1

REPORT INFORMATION
  Report Type: Spontaneous
  Country: US (occurrence: US)
  Receive Date: 20150714
  Receipt Date: 20160217
  Transmission Date: 20160525
  Serious: Yes (Hospitalization, Other)
  Sender: FDA-Public Use
  Company Number: US-GLAXOSMITHKLINE-US2015GSK100486

PATIENT
  Age: 35 Year
  Sex: Female

DRUGS (4)
  1. LETAIRIS [Concomitant]
     Active Substance: AMBRISENTAN
     Dosage: UNK
  2. FLOLAN [Suspect]
     Active Substance: EPOPROSTENOL SODIUM
     Dosage: 39.7 NG/KG/MIN, CO
     Dates: start: 20060216
  3. FLOLAN [Suspect]
     Active Substance: EPOPROSTENOL SODIUM
     Indication: PULMONARY ARTERIAL HYPERTENSION
     Dosage: 39.7 NG/KG/MIN, CO
     Route: 042
     Dates: start: 20060216
  4. FLOLAN [Suspect]
     Active Substance: EPOPROSTENOL SODIUM
     Dosage: 39.7 NG/KG/MINUTE, CO
     Route: 042

REACTIONS (3)
  - Bronchitis [Unknown]
  - Acute respiratory failure [Unknown]
  - Catheter site infection [Unknown]

NARRATIVE: CASE EVENT DATE: 201602
